FAERS Safety Report 25248848 (Version 1)
Quarter: 2025Q2

REPORT INFORMATION
  Report Type: Spontaneous
  Country: US (occurrence: US)
  Receive Date: 20250429
  Receipt Date: 20250429
  Transmission Date: 20250717
  Serious: Yes (Other)
  Sender: COOPERSURGICAL
  Company Number: US-COOPERSURGICAL, INC.-2025CPS003218

PATIENT
  Age: 43 Year
  Sex: Female
  Weight: 88.889 kg

DRUGS (7)
  1. PARAGARD T 380A [Suspect]
     Active Substance: COPPER
     Indication: Contraception
     Route: 015
     Dates: start: 20111027
  2. BUPROPION HYDROCHLORIDE XL [Concomitant]
     Active Substance: BUPROPION HYDROCHLORIDE
     Dates: start: 201805
  3. BUSPIRONE [Concomitant]
     Active Substance: BUSPIRONE HYDROCHLORIDE
     Dates: start: 201805
  4. ASPIRIN [Concomitant]
     Active Substance: ASPIRIN
     Dates: start: 201802
  5. ROSUVASTATIN [Concomitant]
     Active Substance: ROSUVASTATIN
     Dates: start: 201802
  6. PRASUGREL [Concomitant]
     Active Substance: PRASUGREL
     Dates: start: 201906
  7. EPIPEN [EPINEPHRINE HYDROCHLORIDE] [Concomitant]
     Dates: start: 201805

REACTIONS (9)
  - Hysterectomy [Recovered/Resolved]
  - Salpingectomy [Recovered/Resolved]
  - Device breakage [Recovered/Resolved]
  - Foreign body in reproductive tract [Recovered/Resolved]
  - Complication of device removal [Recovered/Resolved]
  - Embedded device [Recovered/Resolved]
  - Emotional disorder [Unknown]
  - Intentional device use issue [Recovered/Resolved]
  - Off label use [Unknown]

NARRATIVE: CASE EVENT DATE: 20211028
